FAERS Safety Report 25500800 (Version 3)
Quarter: 2025Q3

REPORT INFORMATION
  Report Type: Spontaneous
  Country: US (occurrence: US)
  Receive Date: 20250701
  Receipt Date: 20250925
  Transmission Date: 20251020
  Serious: Yes (Hospitalization)
  Sender: ELI LILLY AND COMPANY
  Company Number: US-ELI_LILLY_AND_COMPANY-US202506024530

PATIENT
  Age: 87 Year
  Weight: 59.2 kg

DRUGS (1)
  1. ERBITUX [Suspect]
     Active Substance: CETUXIMAB
     Indication: Squamous cell carcinoma of the tongue
     Dosage: 800 MG, 2/M (EVERY TWO WEEKS)
     Route: 042
     Dates: start: 20250625, end: 20250625

REACTIONS (1)
  - Infusion related reaction [Recovered/Resolved]
